FAERS Safety Report 4519835-X (Version None)
Quarter: 2004Q4

REPORT INFORMATION
  Report Type: 
  Country: None (occurrence: None)
  Receive Date: 20041207
  Receipt Date: 20041123
  Transmission Date: 20050328
  Serious: Yes (Hospitalization, Other)
  Sender: FDA-Public Use
  Company Number: PHBS2004CH15959

PATIENT
  Age: 17 Year
  Sex: Female

DRUGS (2)
  1. AMIKIN [Concomitant]
  2. SANDIMMUNE [Suspect]
     Indication: STEM CELL TRANSPLANT
     Dosage: 750 MG/D

REACTIONS (7)
  - ACCIDENTAL OVERDOSE [None]
  - DRUG LEVEL INCREASED [None]
  - GRAFT VERSUS HOST DISEASE [None]
  - HAEMODIALYSIS [None]
  - MEDICATION ERROR [None]
  - PLATELET COUNT DECREASED [None]
  - RENAL FAILURE [None]
